FAERS Safety Report 10495329 (Version 5)
Quarter: 2015Q3

REPORT INFORMATION
  Report Type: Report from Study
  Country: JP (occurrence: JP)
  Receive Date: 20141003
  Receipt Date: 20150813
  Transmission Date: 20151125
  Serious: Yes (Other)
  Sender: FDA-Public Use
  Company Number: JP-JNJFOC-20140926219

PATIENT
  Age: 59 Year
  Sex: Male
  Weight: 64 kg

DRUGS (12)
  1. PEGASYS [Suspect]
     Active Substance: PEGINTERFERON ALFA-2A
     Indication: CHRONIC HEPATITIS C
     Route: 058
     Dates: start: 20140709, end: 20140922
  2. MYSLEE [Concomitant]
     Active Substance: ZOLPIDEM TARTRATE
     Indication: PROPHYLAXIS
     Route: 048
     Dates: start: 20140520, end: 20140929
  3. RIBAVIRIN. [Suspect]
     Active Substance: RIBAVIRIN
     Indication: CHRONIC HEPATITIS C
     Route: 048
     Dates: start: 20140415, end: 20140519
  4. PEGASYS [Suspect]
     Active Substance: PEGINTERFERON ALFA-2A
     Indication: CHRONIC HEPATITIS C
     Route: 058
     Dates: start: 20140415, end: 20140701
  5. FAMOTIDINE. [Concomitant]
     Active Substance: FAMOTIDINE
     Indication: PROPHYLAXIS
     Route: 048
     Dates: start: 20140415, end: 20140707
  6. MYSLEE [Concomitant]
     Active Substance: ZOLPIDEM TARTRATE
     Indication: INSOMNIA
     Route: 048
     Dates: start: 20140520, end: 20140929
  7. RIBAVIRIN. [Suspect]
     Active Substance: RIBAVIRIN
     Indication: CHRONIC HEPATITIS C
     Route: 048
     Dates: start: 20140520, end: 20140929
  8. NABOAL [Concomitant]
     Active Substance: DICLOFENAC
     Indication: PROPHYLAXIS
     Route: 048
     Dates: end: 20140722
  9. FAMOTIDINE. [Concomitant]
     Active Substance: FAMOTIDINE
     Indication: PROPHYLAXIS
     Route: 048
     Dates: end: 20140929
  10. NABOAL [Concomitant]
     Active Substance: DICLOFENAC
     Indication: PROPHYLAXIS
     Dosage: RSN
     Route: 048
     Dates: start: 20140415, end: 20140707
  11. RINDERON VG [Concomitant]
     Active Substance: BETAMETHASONE VALERATE\GENTAMICIN SULFATE
     Indication: PSORIASIS
     Dosage: RSN
     Route: 061
     Dates: start: 20140527, end: 20140707
  12. SOVRIAD [Suspect]
     Active Substance: SIMEPREVIR
     Indication: CHRONIC HEPATITIS C
     Route: 048
     Dates: start: 20140415, end: 20140707

REACTIONS (6)
  - Platelet count decreased [Recovered/Resolved]
  - Anaemia [Recovered/Resolved]
  - Insomnia [Recovered/Resolved]
  - Psoriasis [Recovered/Resolved]
  - Blood bilirubin increased [Recovered/Resolved]
  - Injection site erythema [Recovered/Resolved]

NARRATIVE: CASE EVENT DATE: 20140422
